FAERS Safety Report 14901845 (Version 1)
Quarter: 2018Q2

REPORT INFORMATION
  Report Type: Spontaneous
  Country: BE (occurrence: BE)
  Receive Date: 20180516
  Receipt Date: 20180516
  Transmission Date: 20180711
  Serious: Yes (Death, Hospitalization)
  Sender: FDA-Public Use
  Company Number: BE-ASTRAZENECA-2018SE62007

PATIENT
  Age: 81 Year
  Sex: Female

DRUGS (12)
  1. MIRTAZAPINE. [Suspect]
     Active Substance: MIRTAZAPINE
     Indication: INSOMNIA
     Dosage: 15.0MG UNKNOWN
     Route: 048
  2. OMEPRAZOL [Suspect]
     Active Substance: OMEPRAZOLE
     Dosage: 40.0MG UNKNOWN
     Route: 048
  3. HYDRALAZINE [Concomitant]
     Active Substance: HYDRALAZINE HYDROCHLORIDE
     Dosage: 75.0MG UNKNOWN
     Route: 048
  4. TENORMIN [Concomitant]
     Active Substance: ATENOLOL
     Dosage: 32.5MG UNKNOWN
     Route: 048
  5. ASAFLOW [Concomitant]
     Active Substance: ASPIRIN
     Dosage: 80.0MG UNKNOWN
     Route: 048
  6. MIRTAZAPINE. [Suspect]
     Active Substance: MIRTAZAPINE
     Indication: DEPRESSION
     Dosage: 15.0MG UNKNOWN
     Route: 048
  7. ERYTHROFORTE 500 [Suspect]
     Active Substance: ERYTHROMYCIN ETHYLSUCCINATE
     Route: 048
     Dates: start: 20180102, end: 20180109
  8. SERTRALINE [Suspect]
     Active Substance: SERTRALINE HYDROCHLORIDE
     Indication: DEPRESSION
     Dosage: 50.0MG UNKNOWN
     Route: 048
  9. CORDARONE [Suspect]
     Active Substance: AMIODARONE HYDROCHLORIDE
     Dosage: 100.0MG UNKNOWN
     Route: 048
  10. LASIX [Suspect]
     Active Substance: FUROSEMIDE
     Dosage: 80.0MG UNKNOWN
     Route: 048
  11. MOXONIDINE [Concomitant]
     Active Substance: MOXONIDINE
     Route: 048
  12. ALLOPURINOL. [Concomitant]
     Active Substance: ALLOPURINOL
     Dosage: 100.0MG UNKNOWN
     Route: 048

REACTIONS (3)
  - Drug interaction [Fatal]
  - Electrocardiogram QT prolonged [Fatal]
  - Death [Fatal]
